FAERS Safety Report 5939646-8 (Version None)
Quarter: 2008Q4

REPORT INFORMATION
  Report Type: 
  Country: None (occurrence: None)
  Receive Date: 20081030
  Receipt Date: 20081030
  Transmission Date: 20090506
  Serious: Yes (Hospitalization)
  Sender: FDA-Public Use
  Company Number: None

PATIENT
  Age: 46 Year
  Sex: Female
  Weight: 117 kg

DRUGS (1)
  1. VANCOMYCIN [Suspect]
     Indication: DIVERTICULAR PERFORATION
     Dosage: 3G QD X 1 D IV
     Route: 042
     Dates: start: 20080909, end: 20080914

REACTIONS (1)
  - RENAL FAILURE ACUTE [None]
